FAERS Safety Report 7108696-0 (Version None)
Quarter: 2010Q4

REPORT INFORMATION
  Report Type: 
  Country: None (occurrence: None)
  Receive Date: 20101117
  Receipt Date: 20101101
  Transmission Date: 20110411
  Serious: Yes (Hospitalization)
  Sender: FDA-Public Use
  Company Number: GR-AMGEN-GRCSP2010003168

PATIENT

DRUGS (2)
  1. ETANERCEPT [Suspect]
     Indication: JUVENILE ARTHRITIS
     Dosage: UNKNOWN; BEGAN AT AGE 13
  2. LEFLUNOMIDE [Concomitant]
     Indication: JUVENILE ARTHRITIS
     Dosage: UNKNOWN, BEGAN AT AGE 13

REACTIONS (1)
  - CROHN'S DISEASE [None]
